FAERS Safety Report 9750178 (Version 2)
Quarter: 2014Q2

REPORT INFORMATION
  Report Type: Spontaneous
  Country: US (occurrence: US)
  Receive Date: 20131212
  Receipt Date: 20140411
  Transmission Date: 20141212
  Serious: Yes (Hospitalization)
  Sender: FDA-Public Use
  Company Number: US-GLAXOSMITHKLINE-A1026472A

PATIENT
  Age: 64 Year
  Sex: Female

DRUGS (3)
  1. REQUIP [Suspect]
     Indication: PRODUCT USED FOR UNKNOWN INDICATION
     Dosage: 1MG TWICE PER DAY
     Route: 065
     Dates: start: 20090127
  2. VENTOLIN HFA [Suspect]
     Indication: RESPIRATORY DISORDER
     Route: 065
     Dates: start: 20081215
  3. REQUIP [Concomitant]
     Dosage: 1MG UNKNOWN
     Route: 065
     Dates: start: 20081215

REACTIONS (2)
  - Incorrect dose administered [Unknown]
  - Investigation [Unknown]
